FAERS Safety Report 8800834 (Version 1)
Quarter: 2012Q4

REPORT INFORMATION
  Report Type: 
  Country: FR (occurrence: FR)
  Receive Date: 20120921
  Receipt Date: 20120921
  Transmission Date: 20130627
  Serious: Yes (Other)
  Sender: FDA-Public Use
  Company Number: FR-BRISTOL-MYERS SQUIBB COMPANY-16952962

PATIENT
  Age: 77 Year
  Sex: Female

DRUGS (4)
  1. COUMADIN TABS 2 MG [Suspect]
     Indication: DEEP VEIN THROMBOSIS
     Route: 048
     Dates: start: 20120719
  2. DEPAKOTE [Suspect]
     Indication: PSYCHIATRIC DECOMPENSATION
     Route: 048
     Dates: start: 20120723
  3. LOVENOX [Suspect]
     Indication: DEEP VEIN THROMBOSIS
     Route: 058
     Dates: start: 20120719
  4. ZYPREXA [Concomitant]
     Dosage: coated tablet
     Route: 048
     Dates: start: 2003

REACTIONS (1)
  - Neutropenia [Recovered/Resolved]
